FAERS Safety Report 18233903 (Version 2)
Quarter: 2020Q3

REPORT INFORMATION
  Report Type: Spontaneous
  Country: US (occurrence: US)
  Receive Date: 20200904
  Receipt Date: 20200914
  Transmission Date: 20201103
  Serious: Yes (Other)
  Sender: FDA-Public Use
  Company Number: US-009507513-2009USA001851

PATIENT
  Sex: Male

DRUGS (10)
  1. CUBICIN [Suspect]
     Active Substance: DAPTOMYCIN
     Indication: STAPHYLOCOCCAL BACTERAEMIA
     Dosage: 0.5 X MIC
  2. LINEZOLID. [Concomitant]
     Active Substance: LINEZOLID
     Dosage: UNK, HIGH DOSE
  3. CUBICIN [Suspect]
     Active Substance: DAPTOMYCIN
     Dosage: HIGH DOSE, UNK
  4. VANCOMYCIN [Suspect]
     Active Substance: VANCOMYCIN
     Indication: OSTEOMYELITIS
     Dosage: 0.5 X MIC
  5. CUBICIN [Suspect]
     Active Substance: DAPTOMYCIN
     Dosage: 0.75 X MIC
  6. CEFTAROLINE FOSAMIL ACETATE [Suspect]
     Active Substance: CEFTAROLINE FOSAMIL
     Indication: STAPHYLOCOCCAL BACTERAEMIA
     Dosage: 0.5 X MIC
  7. VANCOMYCIN [Suspect]
     Active Substance: VANCOMYCIN
     Indication: STAPHYLOCOCCAL BACTERAEMIA
     Dosage: UNK
  8. CEFTAROLINE FOSAMIL ACETATE [Suspect]
     Active Substance: CEFTAROLINE FOSAMIL
     Dosage: 0.75 X MIC
  9. LINEZOLID. [Concomitant]
     Active Substance: LINEZOLID
     Dosage: UNK
  10. VANCOMYCIN [Suspect]
     Active Substance: VANCOMYCIN
     Dosage: 0.75 X MIC

REACTIONS (1)
  - Pathogen resistance [Unknown]
